FAERS Safety Report 8798301 (Version 1)
Quarter: 2012Q4

REPORT INFORMATION
  Report Type: 
  Country: US (occurrence: US)
  Receive Date: 20120920
  Receipt Date: 20120920
  Transmission Date: 20130627
  Serious: Yes (Death, Other)
  Sender: FDA-Public Use
  Company Number: US-ASTRAZENECA-2012SE72564

PATIENT
  Age: 65 Year
  Sex: Female
  Weight: 65.8 kg

DRUGS (3)
  1. BRILINTA [Suspect]
     Route: 048
  2. ANGIOMAX [Suspect]
  3. FEW ADDITIONAL DRUGS [Concomitant]

REACTIONS (5)
  - Cardiac arrest [Fatal]
  - Cardiogenic shock [Fatal]
  - Coronary artery thrombosis [Fatal]
  - Coronary artery dissection [Fatal]
  - Pulmonary alveolar haemorrhage [Fatal]
